FAERS Safety Report 18391131 (Version 1)
Quarter: 2020Q4

REPORT INFORMATION
  Report Type: Spontaneous
  Country: FR (occurrence: FR)
  Receive Date: 20201016
  Receipt Date: 20201016
  Transmission Date: 20210114
  Serious: Yes (Death)
  Sender: FDA-Public Use
  Company Number: FR-TEVA-2020-FR-1838420

PATIENT
  Age: 69 Year
  Sex: Male
  Weight: 76 kg

DRUGS (2)
  1. IMATINIB BASE [Suspect]
     Active Substance: IMATINIB
     Dosage: 100 MG
     Route: 065
     Dates: start: 20190902, end: 20190903
  2. OMACETAXINE MEPESUCCINATE [Suspect]
     Active Substance: OMACETAXINE MEPESUCCINATE
     Indication: ACUTE MYELOID LEUKAEMIA
     Route: 065
     Dates: start: 20190828, end: 20190914

REACTIONS (2)
  - Cardiac failure chronic [Fatal]
  - Cardiorenal syndrome [Fatal]

NARRATIVE: CASE EVENT DATE: 20190901
